FAERS Safety Report 4733665-5 (Version None)
Quarter: 2005Q3

REPORT INFORMATION
  Report Type: 
  Country: None (occurrence: None)
  Receive Date: 20050729
  Receipt Date: 20050725
  Transmission Date: 20060218
  Serious: Yes (Death, Other)
  Sender: FDA-Public Use
  Company Number: 2004063498

PATIENT
  Age: 48 Year
  Sex: Female

DRUGS (2)
  1. DOXYCYCLINE [Suspect]
     Indication: CHLAMYDIAL INFECTION
     Dosage: ORAL
     Route: 048
  2. PREDNISONE [Concomitant]

REACTIONS (25)
  - BLOOD BILIRUBIN UNCONJUGATED INCREASED [None]
  - BLOOD UREA INCREASED [None]
  - BODY TEMPERATURE INCREASED [None]
  - CARDIAC ARREST [None]
  - CONFUSIONAL STATE [None]
  - CONVULSION [None]
  - DISORIENTATION [None]
  - EYE HAEMORRHAGE [None]
  - HAEMATEMESIS [None]
  - HAPTOGLOBIN DECREASED [None]
  - HEADACHE [None]
  - IRRITABILITY [None]
  - JAUNDICE [None]
  - NEUTROPHIL TOXIC GRANULATION PRESENT [None]
  - PALLOR [None]
  - PROTEINURIA [None]
  - PYREXIA [None]
  - RED BLOOD CELLS URINE POSITIVE [None]
  - RENAL IMPAIRMENT [None]
  - RETICULOCYTE COUNT INCREASED [None]
  - SOMNOLENCE [None]
  - THROMBOTIC THROMBOCYTOPENIC PURPURA [None]
  - UNRESPONSIVE TO VERBAL STIMULI [None]
  - URINARY CASTS [None]
  - WHITE BLOOD CELL COUNT INCREASED [None]
